FAERS Safety Report 5018236-8 (Version None)
Quarter: 2006Q2

REPORT INFORMATION
  Report Type: 
  Country: None (occurrence: None)
  Receive Date: 20060530
  Receipt Date: 20060511
  Transmission Date: 20061013
  Serious: Yes (Hospitalization)
  Sender: FDA-Public Use
  Company Number: 2006014170

PATIENT
  Age: 60 Year
  Sex: Male

DRUGS (5)
  1. SOLU-MEDROL [Suspect]
     Indication: LYMPHOMA
     Dosage: 250 MG (250 MG, 1 IN 1 D), INTRAVENOUS
     Route: 042
     Dates: start: 20051122
  2. CISPLATIN [Suspect]
     Indication: LYMPHOMA
     Dosage: 41 MG (41 MG, 1 IN 1 D), INTRAVENOUS
     Route: 042
     Dates: start: 20051122, end: 20051125
  3. VEPESID [Suspect]
     Indication: LYMPHOMA
     Dosage: 67 MG (67 MG, 1 IN 1 D), INTRAVENOUS
     Route: 042
     Dates: start: 20051122
  4. CYTARABINE [Suspect]
     Indication: LYMPHOMA
     Dosage: 3350 MG (3350 MG, 1 IN 1 D), INTRAVENOUS
     Route: 042
     Dates: start: 20051126
  5. SULFAMETHOXAZOLE + TRIMETHOPRIM [Concomitant]

REACTIONS (2)
  - PLATELET COUNT DECREASED [None]
  - WHITE BLOOD CELL COUNT DECREASED [None]
